FAERS Safety Report 23414302 (Version 1)
Quarter: 2024Q1

REPORT INFORMATION
  Report Type: Spontaneous
  Country: CA (occurrence: US)
  Receive Date: 20240118
  Receipt Date: 20240118
  Transmission Date: 20240410
  Serious: No
  Sender: FDA-Public Use
  Company Number: CA-OPELLA-2024OHG001534

PATIENT
  Sex: Female

DRUGS (1)
  1. DULCOLAX STIMULANT LAXATIVE [Suspect]
     Active Substance: BISACODYL
     Indication: Constipation
     Route: 065

REACTIONS (2)
  - Abdominal discomfort [Unknown]
  - Muscle spasms [Unknown]
